FAERS Safety Report 12919695 (Version 1)
Quarter: 2016Q4

REPORT INFORMATION
  Report Type: Spontaneous
  Country: US (occurrence: US)
  Receive Date: 20161108
  Receipt Date: 20161108
  Transmission Date: 20170207
  Serious: No
  Sender: FDA-Public Use
  Company Number: US-PFIZER INC-2016411272

PATIENT
  Age: 70 Year
  Sex: Female

DRUGS (16)
  1. PROGRAF [Concomitant]
     Active Substance: TACROLIMUS\TACROLIMUS ANHYDROUS
     Dosage: 1 MG, 2X/DAY (TAKE ONE BY MOUTH EACH MORNING AND EVENING FOR A TOTAL OF TWO DAILY)
     Route: 048
  2. MYFORTIC [Concomitant]
     Active Substance: MYCOPHENOLATE SODIUM
     Dosage: 360 MG, 2X/DAY (TAKE ONE BY MOUTH EACH MORNING AND EVENING FOR A TOTAL OF TWO DAILY)
     Route: 048
  3. METANX [Concomitant]
     Active Substance: LEVOMEFOLATE CALCIUM\METHYLCOBALAMIN\PYRIDOXAL PHOSPHATE ANHYDROUS
     Dosage: 1 DF, 1X/DAY (3-90.314-2-35 MG CAPS TAKE ONE BY MOUTH EVERY DAY)
     Route: 048
  4. POLYETHYLENE GLYCOL 3350. [Concomitant]
     Active Substance: POLYETHYLENE GLYCOL 3350
     Dosage: 17 G, DAILY
  5. OMEPRAZOLE. [Concomitant]
     Active Substance: OMEPRAZOLE
     Dosage: 20 MG, 1X/DAY (ONE TABLET BY MOUTH ONCE DAILY)
     Route: 048
  6. LANTUS [Concomitant]
     Active Substance: INSULIN GLARGINE
     Dosage: 10 IU, 1X/DAY (100 UNIT/ML SOLUTION, ONCE DAILY AT BEDTIME)
     Route: 058
  7. NOVOLOG [Concomitant]
     Active Substance: INSULIN ASPART
     Dosage: 17 IU, DAILY (100 UNIT/ML SOLUTION, 3 UNITS AT BREAKFAST, 5 UNITS AT LUNCH, 9 UNITS AT DINNER)
     Route: 058
  8. ASPIRIN. [Concomitant]
     Active Substance: ASPIRIN
     Dosage: 325 MG, 1X/DAY (TAKE ONE BY MOUTH EVERY DAY)
     Route: 048
  9. LINZESS [Concomitant]
     Active Substance: LINACLOTIDE
     Dosage: 145 UG, 1X/DAY (TAKE ONE BY MOUTH EVERY DAY)
     Route: 048
  10. ISOSORBIDE DINITRATE. [Concomitant]
     Active Substance: ISOSORBIDE DINITRATE
     Dosage: 30 MG, 1X/DAY (ONE TABLET BY MOUTH ONCE DAILY)
     Route: 048
  11. LYRICA [Suspect]
     Active Substance: PREGABALIN
     Indication: NEUROPATHY PERIPHERAL
     Dosage: 75 MG, 2X/DAY (TAKE ONE BY MOUTH EACH MORNING AND EVENING FOR A TOTAL OF TWO DAILY)
     Route: 048
  12. VITAMIN D3 [Concomitant]
     Active Substance: CHOLECALCIFEROL
     Dosage: 5000 IU, 1X/DAY (ONE TABLET BY MOUTH ONCE DAILY)
     Route: 048
  13. PREDNISONE. [Concomitant]
     Active Substance: PREDNISONE
     Dosage: 5 MG, 1X/DAY (TAKE ONE BY MOUTH EVERY DAY)
     Route: 048
  14. CATAPRES [Concomitant]
     Active Substance: CLONIDINE HYDROCHLORIDE
     Dosage: 0.1 MG, 1X/DAY (TAKE ONE BY MOUTH EVERY DAY)
     Route: 048
  15. CARVEDILOL. [Concomitant]
     Active Substance: CARVEDILOL
     Dosage: 25 MG, 2X/DAY (TAKE ONE BY MOUTH EACH MORNING AND EVENING FOR A TOTAL OF TWO DAILY)
     Route: 048
  16. SINEMET [Concomitant]
     Active Substance: CARBIDOPA\LEVODOPA
     Dosage: 1 DF, UNK (CARBIDOPA: 25 MG, LEVODOPA: 100 MG; THREE OR 4 TIMES A DAY)

REACTIONS (3)
  - Dysuria [Unknown]
  - Dyspnoea [Unknown]
  - Pharyngeal oedema [Unknown]
